FAERS Safety Report 9880589 (Version 3)
Quarter: 2014Q1

REPORT INFORMATION
  Report Type: Spontaneous
  Country: NL (occurrence: NL)
  Receive Date: 20140207
  Receipt Date: 20140226
  Transmission Date: 20141002
  Serious: Yes (Hospitalization, Other)
  Sender: FDA-Public Use
  Company Number: NL-ASTRAZENECA-2014SE04904

PATIENT
  Age: 28541 Day
  Sex: Female

DRUGS (3)
  1. FULVESTRANT [Suspect]
     Indication: BREAST CANCER METASTATIC
     Route: 030
     Dates: start: 20131014
  2. FULVESTRANT [Suspect]
     Indication: BREAST CANCER METASTATIC
     Route: 030
     Dates: start: 20131223
  3. FULVESTRANT [Suspect]
     Indication: BREAST CANCER METASTATIC
     Route: 030
     Dates: start: 20140120

REACTIONS (3)
  - Dyspnoea [Not Recovered/Not Resolved]
  - Malignant neoplasm progression [Unknown]
  - Terminal state [Not Recovered/Not Resolved]
